FAERS Safety Report 18049275 (Version 1)
Quarter: 2020Q3

REPORT INFORMATION
  Report Type: Spontaneous
  Country: US (occurrence: US)
  Receive Date: 20200721
  Receipt Date: 20200721
  Transmission Date: 20201103
  Serious: Yes (Hospitalization)
  Sender: FDA-Public Use
  Company Number: None

PATIENT
  Age: 41 Year
  Sex: Female
  Weight: 86.2 kg

DRUGS (1)
  1. ASPIRIN. [Suspect]
     Active Substance: ASPIRIN
     Dates: end: 20200713

REACTIONS (8)
  - Incision site cellulitis [None]
  - Culture wound positive [None]
  - Mammoplasty [None]
  - Medical device removal [None]
  - Incision site ulcer [None]
  - Candida infection [None]
  - Staphylococcal infection [None]
  - Postoperative wound infection [None]

NARRATIVE: CASE EVENT DATE: 20200713
